FAERS Safety Report 5469435-2 (Version None)
Quarter: 2007Q3

REPORT INFORMATION
  Report Type: 
  Country: None (occurrence: None)
  Receive Date: 20070925
  Receipt Date: 20070925
  Transmission Date: 20080115
  Serious: Yes (Hospitalization)
  Sender: FDA-Public Use
  Company Number: None

PATIENT
  Age: 51 Year
  Sex: Female

DRUGS (1)
  1. CARVEDILOL [Suspect]
     Indication: CARDIAC FAILURE CONGESTIVE
     Dosage: 25MG  BID  PO
     Route: 048
     Dates: start: 20070704, end: 20070704

REACTIONS (3)
  - BRADYCARDIA [None]
  - HYPOTENSION [None]
  - TREATMENT NONCOMPLIANCE [None]
